FAERS Safety Report 8758576 (Version 1)
Quarter: 2012Q4

REPORT INFORMATION
  Report Type: 
  Country: US (occurrence: US)
  Receive Date: 20120829
  Receipt Date: 20120829
  Transmission Date: 20130627
  Serious: No
  Sender: FDA-Public Use
  Company Number: US-GLAXOSMITHKLINE-A0982878A

PATIENT
  Age: 83 Year
  Sex: Female

DRUGS (7)
  1. ZOVIRAX [Suspect]
     Indication: VULVOVAGINAL DISCOMFORT
     Route: 061
     Dates: start: 201203, end: 201203
  2. ISOSORBIDE [Concomitant]
  3. CELEBREX [Concomitant]
  4. SYNTHROID [Concomitant]
  5. MULTIVITAMIN [Concomitant]
  6. VITAMIN D [Concomitant]
  7. PHILLIPS GEL CAPS [Concomitant]

REACTIONS (2)
  - Drug ineffective [Unknown]
  - Product quality issue [Unknown]
